FAERS Safety Report 5237964-2 (Version None)
Quarter: 2007Q1

REPORT INFORMATION
  Report Type: 
  Country: None (occurrence: None)
  Receive Date: 20070214
  Receipt Date: 20070202
  Transmission Date: 20070707
  Serious: Yes (Hospitalization)
  Sender: FDA-Public Use
  Company Number: US-PFIZER INC-2006071328

PATIENT
  Sex: Male
  Weight: 83.9 kg

DRUGS (1)
  1. BEXTRA [Suspect]
     Indication: ARTHRITIS
     Dates: start: 20040211, end: 20041015

REACTIONS (2)
  - CEREBROVASCULAR ACCIDENT [None]
  - SILENT MYOCARDIAL INFARCTION [None]
